FAERS Safety Report 15029794 (Version 4)
Quarter: 2018Q4

REPORT INFORMATION
  Report Type: Spontaneous
  Country: BR (occurrence: BR)
  Receive Date: 20180619
  Receipt Date: 20181005
  Transmission Date: 20190204
  Serious: No
  Sender: FDA-Public Use
  Company Number: BR-GLAXOSMITHKLINE-BR2018GSK106988

PATIENT
  Sex: Male
  Weight: 13.5 kg

DRUGS (6)
  1. PREDSIM [Concomitant]
     Active Substance: PREDNISOLONE
     Indication: ILL-DEFINED DISORDER
     Dosage: UNK
     Route: 048
     Dates: end: 2016
  2. AEROLIN [Suspect]
     Active Substance: ALBUTEROL
     Indication: ILL-DEFINED DISORDER
     Dosage: 3 PUFF(S), Z
     Route: 055
     Dates: start: 2015
  3. SERETIDE [Suspect]
     Active Substance: FLUTICASONE PROPIONATE\SALMETEROL XINAFOATE
     Indication: BRONCHITIS
  4. SERETIDE [Suspect]
     Active Substance: FLUTICASONE PROPIONATE\SALMETEROL XINAFOATE
     Indication: BRONCHIOLITIS
  5. SERETIDE [Suspect]
     Active Substance: FLUTICASONE PROPIONATE\SALMETEROL XINAFOATE
     Indication: PNEUMONIA
     Dosage: 1 PUFF(S), QD
     Dates: start: 201608, end: 201712
  6. AVAMYS [Suspect]
     Active Substance: FLUTICASONE FUROATE
     Indication: PROPHYLAXIS
     Dosage: 2 PUFF(S), QD
     Route: 045
     Dates: start: 201801

REACTIONS (3)
  - Overdose [Not Recovered/Not Resolved]
  - Product use in unapproved indication [Recovered/Resolved]
  - Product use issue [Recovered/Resolved]
